FAERS Safety Report 20907058 (Version 1)
Quarter: 2022Q2

REPORT INFORMATION
  Report Type: Spontaneous
  Country: US (occurrence: US)
  Receive Date: 20220602
  Receipt Date: 20220602
  Transmission Date: 20220721
  Serious: Yes (Other)
  Sender: FDA-Public Use
  Company Number: US-INCYTE CORPORATION-2022IN005297

PATIENT

DRUGS (1)
  1. JAKAFI [Suspect]
     Active Substance: RUXOLITINIB
     Indication: Myeloproliferative neoplasm
     Dosage: 5 MILLIGRAM, BID
     Route: 048

REACTIONS (4)
  - Myeloproliferative neoplasm [Not Recovered/Not Resolved]
  - Splenomegaly [Unknown]
  - Disease progression [Not Recovered/Not Resolved]
  - Off label use [Unknown]
